FAERS Safety Report 4990237-5 (Version None)
Quarter: 2006Q2

REPORT INFORMATION
  Report Type: 
  Country: None (occurrence: None)
  Receive Date: 20060503
  Receipt Date: 20060414
  Transmission Date: 20061013
  Serious: Yes (Other)
  Sender: FDA-Public Use
  Company Number: JP-AVENTIS-200611244JP

PATIENT
  Age: 71 Year
  Sex: Male

DRUGS (11)
  1. AMARYL [Suspect]
     Route: 048
  2. MICARDIS [Suspect]
  3. CALBLOCK                                /JPN/ [Suspect]
  4. BASEN [Concomitant]
  5. TENORMIN [Concomitant]
  6. ASPIRIN [Concomitant]
     Dosage: DOSE: 1TABLET
  7. PANALDINE [Concomitant]
     Dosage: DOSE: 4TABLETS
  8. MAGNESIUM OXIDE [Concomitant]
  9. OMEPRAL [Concomitant]
  10. LOCHOL [Concomitant]
  11. ARGAMATE [Concomitant]

REACTIONS (1)
  - BLOOD POTASSIUM INCREASED [None]
